FAERS Safety Report 13611992 (Version 2)
Quarter: 2017Q2

REPORT INFORMATION
  Report Type: Spontaneous
  Country: DE (occurrence: DE)
  Receive Date: 20170605
  Receipt Date: 20170612
  Transmission Date: 20170830
  Serious: Yes (Death, Life-Threatening, Other)
  Sender: FDA-Public Use
  Company Number: DE-MYLANLABS-2017M1033333

PATIENT

DRUGS (19)
  1. TORASEMID [Concomitant]
     Active Substance: TORSEMIDE
     Dosage: APPLICATION FOR A LONGER TIME
     Route: 048
     Dates: end: 20170131
  2. VESIKUR [Concomitant]
     Active Substance: SOLIFENACIN SUCCINATE
     Dosage: APPLICATION FOR A LONGER TIME
     Route: 048
     Dates: end: 20170131
  3. SALBUTAMOL [Concomitant]
     Active Substance: ALBUTEROL
     Dosage: 7 GTT, UNK
     Dates: start: 20170129, end: 20170131
  4. CLOZAPINE. [Suspect]
     Active Substance: CLOZAPINE
     Dosage: 300 MG, QD
     Route: 048
     Dates: start: 20140502, end: 20160501
  5. CLOZAPINE. [Suspect]
     Active Substance: CLOZAPINE
     Dosage: 300 MG, QD
     Route: 048
     Dates: start: 20170105, end: 20170126
  6. RAMIPRIL. [Concomitant]
     Active Substance: RAMIPRIL
     Dosage: APPLICATION FOR A LONGER TIME
     Route: 048
     Dates: end: 20170131
  7. CLOZAPINE. [Suspect]
     Active Substance: CLOZAPINE
     Dosage: 275 MG, QD
     Route: 048
     Dates: start: 20161214, end: 20170104
  8. ACETYLCYSTEIN [Concomitant]
     Active Substance: ACETYLCYSTEINE
     Dosage: APPLICATION FOR A LONGER TIME
     Route: 048
     Dates: start: 20170129, end: 20170131
  9. LAMOTRIGIN [Concomitant]
     Active Substance: LAMOTRIGINE
     Dosage: APPLICATION FOR A LONGER TIME
     Route: 048
     Dates: end: 20170131
  10. SIFROL [Concomitant]
     Active Substance: PRAMIPEXOLE
     Dosage: APPLICATION FOR A LONGER TIME
     Route: 048
     Dates: end: 20170131
  11. SIMVASTATIN. [Concomitant]
     Active Substance: SIMVASTATIN
     Dosage: APPLICATION FOR A LONGER TIME
     Route: 048
     Dates: end: 20170131
  12. BERODUAL [Concomitant]
     Active Substance: FENOTEROL HYDROBROMIDE\IPRATROPIUM BROMIDE
     Dosage: APPLICATION FOR A LONGER TIME
     Dates: end: 20170131
  13. L-THYROXIN [Concomitant]
     Active Substance: LEVOTHYROXINE SODIUM
     Dosage: APPLICATION FOR A LONGER TIME
     Route: 048
     Dates: end: 20170131
  14. CLOZAPINE. [Suspect]
     Active Substance: CLOZAPINE
     Dosage: 150 MG, QD
     Route: 048
     Dates: start: 20111101, end: 20140501
  15. CLOZAPINE. [Suspect]
     Active Substance: CLOZAPINE
     Dosage: 250 MG, QD
     Route: 048
     Dates: start: 20170127, end: 20170131
  16. RANEXA [Concomitant]
     Active Substance: RANOLAZINE
     Dosage: APPLICATION FOR A LONGER TIME
     Route: 048
     Dates: end: 20170131
  17. ATROVENT [Concomitant]
     Active Substance: IPRATROPIUM BROMIDE
     Dosage: 7 GTT, UNK
     Dates: start: 20170129, end: 20170131
  18. CLOZAPINE. [Suspect]
     Active Substance: CLOZAPINE
     Dosage: 250 MG, QD
     Route: 048
     Dates: start: 20160502, end: 20161213
  19. ACETYLSALICYLSAEURE [Concomitant]
     Active Substance: ASPIRIN
     Dosage: APPLICATION FOR A LONGER TIME
     Route: 048
     Dates: end: 20170131

REACTIONS (1)
  - Death [Fatal]

NARRATIVE: CASE EVENT DATE: 20170131
